FAERS Safety Report 15650639 (Version 2)
Quarter: 2019Q1

REPORT INFORMATION
  Report Type: Spontaneous
  Country: IT (occurrence: IT)
  Receive Date: 20181123
  Receipt Date: 20190118
  Transmission Date: 20190417
  Serious: Yes (Disabling)
  Sender: FDA-Public Use
  Company Number: IT-009507513-1811ITA005288

PATIENT
  Age: 80 Year
  Sex: Female

DRUGS (14)
  1. ADROVANCE [Suspect]
     Active Substance: ALENDRONATE SODIUM\CHOLECALCIFEROL
     Indication: OSTEOPOROSIS
     Dosage: 70 MILLIGRAM, QW (STRENGTH: 70MG/2800IU)
     Route: 048
     Dates: start: 20130101, end: 20180915
  2. RANIBEN [Concomitant]
     Dosage: 1 DOSAGE FORM
  3. LANOXIN [Concomitant]
     Active Substance: DIGOXIN
     Dosage: UNK
  4. COUMADIN [Concomitant]
     Active Substance: WARFARIN SODIUM
     Dosage: UNK
     Route: 048
  5. METFORALMILLE [Concomitant]
     Active Substance: METFORMIN HYDROCHLORIDE
     Dosage: 3 DOSAGE FORM
  6. SIMVASTATIN. [Concomitant]
     Active Substance: SIMVASTATIN
     Dosage: 40 MILLIGRAM
  7. ASACOL [Concomitant]
     Active Substance: MESALAMINE
     Dosage: 3 DOSAGE FORM
     Route: 048
  8. KANRENOL [Concomitant]
     Active Substance: CANRENOATE POTASSIUM
     Dosage: 1 DOSAGE FORM
  9. TAPAZOLE [Concomitant]
     Active Substance: METHIMAZOLE
     Dosage: UNK
  10. LASIX [Concomitant]
     Active Substance: FUROSEMIDE
     Dosage: 2 DOSAGE FORM
     Route: 048
  11. ZYLORIC [Concomitant]
     Active Substance: ALLOPURINOL
     Dosage: 1 DOSAGE FORM
     Route: 048
  12. BISOPROLOL FUMARATE. [Concomitant]
     Active Substance: BISOPROLOL FUMARATE
     Dosage: 5 MILLIGRAM
     Route: 048
  13. OMEGA-3 ACID ETHYL ESTERS [Concomitant]
     Active Substance: OMEGA-3-ACID ETHYL ESTERS
     Dosage: 2000 MILLIGRAM
     Route: 048
  14. MEDROL [Concomitant]
     Active Substance: METHYLPREDNISOLONE
     Dosage: 8 MILLIGRAM

REACTIONS (3)
  - Gingivitis [Not Recovered/Not Resolved]
  - Sinusitis [Not Recovered/Not Resolved]
  - Osteonecrosis of jaw [Not Recovered/Not Resolved]

NARRATIVE: CASE EVENT DATE: 20180501
